FAERS Safety Report 24686144 (Version 1)
Quarter: 2024Q4

REPORT INFORMATION
  Report Type: Spontaneous
  Country: US (occurrence: None)
  Receive Date: 20241202
  Receipt Date: 20241202
  Transmission Date: 20250115
  Serious: Yes (Other)
  Sender: Public
  Company Number: None

PATIENT
  Age: 52 Year
  Sex: Female

DRUGS (1)
  1. TERIFLUNOMIDE [Suspect]
     Active Substance: TERIFLUNOMIDE
     Indication: Multiple sclerosis

REACTIONS (8)
  - COVID-19 [None]
  - Rash [None]
  - Rash vesicular [None]
  - Impaired healing [None]
  - Cellulitis [None]
  - Gingival disorder [None]
  - Cellulitis [None]
  - Illness [None]
